FAERS Safety Report 15219617 (Version 1)
Quarter: 2018Q3

REPORT INFORMATION
  Report Type: Spontaneous
  Country: US (occurrence: US)
  Receive Date: 20180731
  Receipt Date: 20180731
  Transmission Date: 20181010
  Serious: Yes (Other)
  Sender: FDA-Public Use
  Company Number: US-SA-2018SA207317

PATIENT
  Age: 43 Year
  Sex: Female
  Weight: 90.71 kg

DRUGS (4)
  1. TAXOTERE [Suspect]
     Active Substance: DOCETAXEL
     Dosage: UNK, Q3W
     Dates: start: 20080801
  2. CARBOPLATIN. [Concomitant]
     Active Substance: CARBOPLATIN
     Route: 065
  3. HERCEPTIN [Concomitant]
     Active Substance: TRASTUZUMAB
     Route: 065
  4. TAXOTERE [Suspect]
     Active Substance: DOCETAXEL
     Indication: BREAST CANCER FEMALE
     Dosage: UNK
     Route: 042
     Dates: start: 20080407, end: 20080407

REACTIONS (1)
  - Alopecia [Recovered/Resolved]
